FAERS Safety Report 18265275 (Version 2)
Quarter: 2020Q4

REPORT INFORMATION
  Report Type: Spontaneous
  Country: US (occurrence: US)
  Receive Date: 20200914
  Receipt Date: 20201117
  Transmission Date: 20210113
  Serious: Yes (Hospitalization, Other)
  Sender: FDA-Public Use
  Company Number: US-LEXICON PHARMACEUTICALS, INC-20-1606-00746

PATIENT
  Age: 58 Year
  Sex: Male

DRUGS (5)
  1. JARDIANCE [Concomitant]
     Active Substance: EMPAGLIFLOZIN
  2. XERMELO [Suspect]
     Active Substance: TELOTRISTAT ETHYL
     Dosage: ONLY TAKING XERMELO TWICE DAILY SOME DAYS
  3. METFORMIN [Concomitant]
     Active Substance: METFORMIN HYDROCHLORIDE
  4. XERMELO [Suspect]
     Active Substance: TELOTRISTAT ETHYL
     Indication: NEUROENDOCRINE TUMOUR
     Dates: start: 20200429
  5. OCTREOTIDE. [Concomitant]
     Active Substance: OCTREOTIDE

REACTIONS (7)
  - Decreased appetite [Not Recovered/Not Resolved]
  - Malaise [Unknown]
  - Hepatic embolisation [Unknown]
  - Biliary stent placement [Unknown]
  - Product dose omission issue [Unknown]
  - Cholecystectomy [Unknown]
  - Pain [Unknown]

NARRATIVE: CASE EVENT DATE: 202008
